FAERS Safety Report 4766410-8 (Version None)
Quarter: 2005Q3

REPORT INFORMATION
  Report Type: 
  Country: None (occurrence: None)
  Receive Date: 20050912
  Receipt Date: 20050906
  Transmission Date: 20060218
  Serious: Yes (Other)
  Sender: FDA-Public Use
  Company Number: US-JNJFOC-20050805958

PATIENT
  Age: 55 Year
  Sex: Female
  Weight: 92.99 kg

DRUGS (8)
  1. TOPAMAX [Suspect]
     Indication: MIGRAINE PROPHYLAXIS
     Route: 048
  2. WELLBUTRIN [Concomitant]
  3. EFFEXOR [Concomitant]
  4. SEROQUEL [Concomitant]
  5. LEVAXIL [Concomitant]
  6. DETROL [Concomitant]
     Indication: BLADDER DISORDER
  7. INDERAL [Concomitant]
     Indication: MIGRAINE
     Route: 048
  8. NEURONTIN [Concomitant]
     Indication: MIGRAINE
     Route: 048

REACTIONS (1)
  - HEPATIC STEATOSIS [None]
